FAERS Safety Report 13170130 (Version 2)
Quarter: 2017Q1

REPORT INFORMATION
  Report Type: Spontaneous
  Country: JP (occurrence: JP)
  Receive Date: 20170131
  Receipt Date: 20170221
  Transmission Date: 20170428
  Serious: Yes (Disabling)
  Sender: FDA-Public Use
  Company Number: JP-SANTEN-201601756

PATIENT

DRUGS (7)
  1. ACETAMINOPHEN. [Suspect]
     Active Substance: ACETAMINOPHEN
     Indication: RHEUMATOID ARTHRITIS
     Dosage: UNK
     Route: 048
     Dates: end: 201310
  2. CRAVIT [Suspect]
     Active Substance: LEVOFLOXACIN
     Dosage: UNK, TID
     Route: 047
     Dates: start: 201307, end: 201307
  3. ACETAMINOPHEN. [Suspect]
     Active Substance: ACETAMINOPHEN
     Dosage: UNK
     Route: 048
     Dates: start: 201310
  4. METHOTREXATE. [Concomitant]
     Active Substance: METHOTREXATE
  5. DICLOD [Suspect]
     Active Substance: DICLOFENAC SODIUM
     Indication: POSTOPERATIVE CARE
     Dosage: UNK, TID
     Route: 047
     Dates: start: 201307, end: 201307
  6. RINDERON                           /00008501/ [Suspect]
     Active Substance: BETAMETHASONE
     Indication: POSTOPERATIVE CARE
     Dosage: UNK, TID
     Route: 047
     Dates: start: 201307, end: 201307
  7. LANSOPRAZOLE. [Concomitant]
     Active Substance: LANSOPRAZOLE

REACTIONS (6)
  - Impaired healing [Recovered/Resolved]
  - Lacrimation increased [Recovered/Resolved]
  - Aqueous humour leakage [Recovered/Resolved]
  - Corneal perforation [Recovered/Resolved]
  - Visual acuity reduced [Recovered/Resolved]
  - Iris incarceration [Recovered/Resolved]

NARRATIVE: CASE EVENT DATE: 201307
